FAERS Safety Report 8429878-1 (Version None)
Quarter: 2012Q2

REPORT INFORMATION
  Report Type: 
  Country: None (occurrence: None)
  Receive Date: 20120612
  Receipt Date: 20120601
  Transmission Date: 20120825
  Serious: No
  Sender: FDA-Public Use
  Company Number: US-ASTRAZENECA-2012SE37301

PATIENT
  Age: 50 Year
  Sex: Male

DRUGS (10)
  1. HYDROCHLOROTHIAZIDE [Concomitant]
     Route: 048
  2. PREDNISONE TAB [Concomitant]
     Route: 048
  3. LISINOPRIL [Suspect]
     Route: 048
  4. PREDNISONE TAB [Concomitant]
     Dosage: 3 DF FOR 2 DAYS THEN 2 DF FOR 2 DAYS THEN 1 DF DAILY FOR 4 DAYS THEN 1/2 DF FOR 4 DAYS
     Route: 048
  5. DOXYCYCLINE HYCLATE [Concomitant]
     Route: 048
  6. ATENOLOL [Suspect]
     Route: 048
  7. PREDNISONE TAB [Concomitant]
     Dosage: 1-3 TABLET DAILY
     Route: 048
  8. DEXILANT [Concomitant]
     Route: 048
  9. CRESTOR [Suspect]
     Route: 048
  10. TRILIPIX [Suspect]
     Route: 048

REACTIONS (12)
  - OBESITY [None]
  - HAEMATOCHEZIA [None]
  - COUGH [None]
  - CONDUCTIVE DEAFNESS [None]
  - INSOMNIA [None]
  - WHEEZING [None]
  - PARANOIA [None]
  - DYSPNOEA [None]
  - BENIGN COLONIC NEOPLASM [None]
  - HAEMORRHOIDS [None]
  - ANXIETY [None]
  - CHEST PAIN [None]
